FAERS Safety Report 4883864-7 (Version None)
Quarter: 2006Q1

REPORT INFORMATION
  Report Type: 
  Country: None (occurrence: None)
  Receive Date: 20060112
  Receipt Date: 20060104
  Transmission Date: 20060701
  Serious: Yes (Hospitalization)
  Sender: FDA-Public Use
  Company Number: 2006-00050

PATIENT
  Age: 30 Year
  Sex: Female

DRUGS (2)
  1. TRELSTAR DEPOT [Suspect]
     Indication: OVULATION INDUCTION
  2. PUREGON (FOLLITROPIN BETA) [Suspect]
     Indication: OVULATION INDUCTION

REACTIONS (1)
  - VENOUS THROMBOSIS [None]
